FAERS Safety Report 12959861 (Version 1)
Quarter: 2016Q4

REPORT INFORMATION
  Report Type: Spontaneous
  Country: US (occurrence: US)
  Receive Date: 20161121
  Receipt Date: 20161121
  Transmission Date: 20170207
  Serious: No
  Sender: FDA-Public Use
  Company Number: US-GLAXOSMITHKLINE-US2016168464

PATIENT
  Sex: Female

DRUGS (9)
  1. LAMOTRIGINE. [Suspect]
     Active Substance: LAMOTRIGINE
     Dosage: UNK
     Route: 048
  2. LAMICTAL XR [Suspect]
     Active Substance: LAMOTRIGINE
     Indication: COMPLEX PARTIAL SEIZURES
     Dosage: 200 MG, QD
     Route: 048
     Dates: start: 201602, end: 20161004
  3. LAMOTRIGINE. [Suspect]
     Active Substance: LAMOTRIGINE
     Dosage: 200 MG, QD
     Route: 048
     Dates: start: 2014, end: 2014
  4. LAMICTAL XR [Suspect]
     Active Substance: LAMOTRIGINE
     Dosage: UNK
  5. XOPENEX [Concomitant]
     Active Substance: LEVALBUTEROL HYDROCHLORIDE
  6. LAMICTAL [Suspect]
     Active Substance: LAMOTRIGINE
     Indication: COMPLEX PARTIAL SEIZURES
     Dosage: 200 MG, QD
     Route: 048
     Dates: start: 2014, end: 201602
  7. LAMICTAL XR [Suspect]
     Active Substance: LAMOTRIGINE
     Dosage: 150 MG, QD
     Route: 048
     Dates: start: 20161005
  8. LAMICTAL [Suspect]
     Active Substance: LAMOTRIGINE
     Indication: PRODUCT USED FOR UNKNOWN INDICATION
     Dosage: UNK
     Dates: start: 2012, end: 2014
  9. LAMOTRIGINE. [Suspect]
     Active Substance: LAMOTRIGINE
     Indication: PETIT MAL EPILEPSY
     Dosage: 25 MG, QD
     Route: 048

REACTIONS (30)
  - Drug ineffective [Recovered/Resolved]
  - Disturbance in attention [Recovered/Resolved]
  - Cardiac disorder [Unknown]
  - Menorrhagia [Unknown]
  - Menstrual disorder [Unknown]
  - Pain in extremity [Unknown]
  - Palpitations [Unknown]
  - Vomiting [Recovered/Resolved]
  - Withdrawal syndrome [Unknown]
  - Incorrect dose administered [Unknown]
  - Heart rate increased [Unknown]
  - Blood glucose decreased [Unknown]
  - Fatigue [Unknown]
  - Anticonvulsant drug level above therapeutic [Unknown]
  - Influenza like illness [Unknown]
  - Anticonvulsant drug level below therapeutic [Not Recovered/Not Resolved]
  - Metabolic disorder [Unknown]
  - Malaise [Unknown]
  - Nausea [Unknown]
  - Anticonvulsant drug level abnormal [Unknown]
  - Electric shock [Unknown]
  - Hyperhidrosis [Unknown]
  - Dizziness [Unknown]
  - Dehydration [Recovered/Resolved]
  - Feeling cold [Unknown]
  - Asthenia [Unknown]
  - Lethargy [Unknown]
  - Chills [Unknown]
  - Therapeutic response changed [Unknown]
  - Chest pain [Unknown]

NARRATIVE: CASE EVENT DATE: 2014
